FAERS Safety Report 11359799 (Version 1)
Quarter: 2015Q3

REPORT INFORMATION
  Report Type: Spontaneous
  Country: US (occurrence: US)
  Receive Date: 20150809
  Receipt Date: 20150809
  Transmission Date: 20151125
  Serious: Yes (Death, Hospitalization)
  Sender: FDA-Public Use
  Company Number: US-TEVA-584373USA

PATIENT
  Age: 65 Year
  Sex: Male

DRUGS (4)
  1. CLOPIDOGREL [Suspect]
     Active Substance: CLOPIDOGREL BISULFATE
     Indication: OFF LABEL USE
     Dosage: DOUBLE DAILY DOSE 150 MG FOR THE INITIAL 13 MONTHS THEN
     Route: 065
  2. PRASUGREL [Suspect]
     Active Substance: PRASUGREL
     Indication: OFF LABEL USE
     Dosage: 10 MG/ DAY
     Route: 065
  3. CLOPIDOGREL [Suspect]
     Active Substance: CLOPIDOGREL BISULFATE
     Indication: OFF LABEL USE
     Dosage: THEN 75 MG /DAY ; FOR }4 YEARS OVERALL DURATION
     Route: 065
  4. ASPIRIN. [Concomitant]
     Active Substance: ASPIRIN
     Dosage: 81 MG/ DAY
     Route: 065

REACTIONS (3)
  - Off label use [Fatal]
  - Sepsis [Fatal]
  - Systemic inflammatory response syndrome [Fatal]
